FAERS Safety Report 7687050-7 (Version None)
Quarter: 2011Q3

REPORT INFORMATION
  Report Type: 
  Country: None (occurrence: None)
  Receive Date: 20110816
  Receipt Date: 20110808
  Transmission Date: 20111222
  Serious: No
  Sender: FDA-Public Use
  Company Number: DE-SANOFI-AVENTIS-2011SA050483

PATIENT
  Sex: Female

DRUGS (1)
  1. MULTAQ [Suspect]
     Route: 048

REACTIONS (2)
  - BLOOD CREATININE INCREASED [None]
  - BLOOD UREA INCREASED [None]
